FAERS Safety Report 5083889-5 (Version None)
Quarter: 2006Q3

REPORT INFORMATION
  Report Type: 
  Country: None (occurrence: None)
  Receive Date: 20060727
  Receipt Date: 20060422
  Transmission Date: 20061208
  Serious: Yes (Other)
  Sender: FDA-Public Use
  Company Number: 2006055328

PATIENT
  Age: 76 Year
  Sex: Male
  Weight: 83.4619 kg

DRUGS (4)
  1. LYRICA [Suspect]
     Indication: NEURALGIA
     Dosage: 300 MG (50 MG, 2 IN 1 D)
     Dates: start: 20050101
  2. LOVASTATIN [Concomitant]
  3. ATENOLOL [Concomitant]
  4. ASPIRIN [Concomitant]

REACTIONS (3)
  - ARTHRALGIA [None]
  - DIZZINESS [None]
  - SINUSITIS [None]
